FAERS Safety Report 22324996 (Version 6)
Quarter: 2025Q2

REPORT INFORMATION
  Report Type: Report from Study
  Country: US (occurrence: US)
  Receive Date: 20230516
  Receipt Date: 20250516
  Transmission Date: 20250717
  Serious: Yes (Hospitalization, Other)
  Sender: VERTEX
  Company Number: US-VERTEX PHARMACEUTICALS-2022-017103

PATIENT
  Sex: Female

DRUGS (7)
  1. TRIKAFTA [Suspect]
     Active Substance: ELEXACAFTOR\IVACAFTOR\TEZACAFTOR
     Indication: Cystic fibrosis
     Dosage: 2 TABS IN AM; 1 TAB IN PM
     Route: 048
     Dates: start: 20200312, end: 20220916
  2. TRIKAFTA [Suspect]
     Active Substance: ELEXACAFTOR\IVACAFTOR\TEZACAFTOR
     Route: 048
     Dates: start: 20230501, end: 20230928
  3. TRIKAFTA [Suspect]
     Active Substance: ELEXACAFTOR\IVACAFTOR\TEZACAFTOR
     Route: 048
     Dates: start: 20240610
  4. TRIKAFTA [Suspect]
     Active Substance: ELEXACAFTOR\IVACAFTOR\TEZACAFTOR
     Route: 048
     Dates: start: 20241209
  5. ALBUTEROL SULFATE [Concomitant]
     Active Substance: ALBUTEROL SULFATE
  6. ZENPEP [Concomitant]
     Active Substance: PANCRELIPASE AMYLASE\PANCRELIPASE LIPASE\PANCRELIPASE PROTEASE
  7. TACROLIMUS [Concomitant]
     Active Substance: TACROLIMUS

REACTIONS (5)
  - Hepatic failure [Unknown]
  - Gastrointestinal disorder [Unknown]
  - Hospitalisation [Unknown]
  - Pneumonia bacterial [Unknown]
  - Hepatic steatosis [Unknown]

NARRATIVE: CASE EVENT DATE: 20230101
